FAERS Safety Report 23777083 (Version 2)
Quarter: 2024Q2

REPORT INFORMATION
  Report Type: Spontaneous
  Country: US (occurrence: US)
  Receive Date: 20240424
  Receipt Date: 20240429
  Transmission Date: 20240716
  Serious: No
  Sender: FDA-Public Use
  Company Number: US-BIOGEN-2024BI01261517

PATIENT
  Sex: Female

DRUGS (15)
  1. PLEGRIDY [Interacting]
     Active Substance: PEGINTERFERON BETA-1A
     Indication: Multiple sclerosis
     Route: 050
     Dates: start: 20150506
  2. PLEGRIDY [Interacting]
     Active Substance: PEGINTERFERON BETA-1A
  3. PLEGRIDY [Suspect]
     Active Substance: PEGINTERFERON BETA-1A
     Indication: Multiple sclerosis
     Dosage: INJECT 125 MCG (1 PEN ) UNDER THE SKIN EVERY 14 DAYS
     Route: 050
  4. ATIVAN [Concomitant]
     Active Substance: LORAZEPAM
     Route: 050
  5. ZOLOFT [Concomitant]
     Active Substance: SERTRALINE HYDROCHLORIDE
     Route: 050
  6. THEOPHYLLINE [Concomitant]
     Active Substance: THEOPHYLLINE
     Route: 050
  7. LEVOTHYROXINE SODIUM [Concomitant]
     Active Substance: LEVOTHYROXINE SODIUM
     Route: 050
  8. ENALAPRIL MALEATE [Concomitant]
     Active Substance: ENALAPRIL MALEATE
     Route: 050
  9. ATORVASTATIN CALCIUM [Concomitant]
     Active Substance: ATORVASTATIN CALCIUM
     Route: 050
  10. PANTOPRAZOLE SODIUM [Concomitant]
     Active Substance: PANTOPRAZOLE SODIUM
     Route: 050
  11. VITAMIN D-1000 [Concomitant]
     Route: 050
  12. ZYRTEC [Concomitant]
     Active Substance: CETIRIZINE HYDROCHLORIDE
     Route: 050
  13. ECOTRIN [Concomitant]
     Active Substance: ASPIRIN
     Route: 050
  14. B COMPLEX WITH C [Concomitant]
     Route: 050
  15. FISH OIL [Concomitant]
     Active Substance: FISH OIL
     Route: 050

REACTIONS (3)
  - Cognitive disorder [Not Recovered/Not Resolved]
  - Gait disturbance [Unknown]
  - Asthenia [Unknown]
